FAERS Safety Report 8215431-1 (Version None)
Quarter: 2012Q1

REPORT INFORMATION
  Report Type: 
  Country: None (occurrence: None)
  Receive Date: 20120316
  Receipt Date: 20120306
  Transmission Date: 20120608
  Serious: Yes (Other)
  Sender: FDA-Public Use
  Company Number: AU-ELI_LILLY_AND_COMPANY-AU201203001600

PATIENT
  Sex: Female

DRUGS (2)
  1. ASPIRIN [Concomitant]
     Dosage: UNK
     Dates: end: 20111201
  2. FORTEO [Suspect]
     Indication: OSTEOPOROSIS
     Dosage: UNK, QD
     Dates: start: 20110811

REACTIONS (1)
  - RECTAL HAEMORRHAGE [None]
